FAERS Safety Report 7566092-6 (Version None)
Quarter: 2011Q2

REPORT INFORMATION
  Report Type: 
  Country: None (occurrence: None)
  Receive Date: 20110616
  Receipt Date: 20110516
  Transmission Date: 20111010
  Serious: Yes (Hospitalization, Other)
  Sender: FDA-Public Use
  Company Number: AUR-APL-2011-01652

PATIENT
  Age: 42 Year
  Sex: Male

DRUGS (9)
  1. WARFARIN SODIUM [Suspect]
     Indication: DEEP VEIN THROMBOSIS
  2. ASPIRIN [Suspect]
     Indication: DEEP VEIN THROMBOSIS
  3. CITALOPRAM HYDROBROMIDE [Suspect]
     Indication: SCHIZOPHRENIA
  4. CITALOPRAM HYDROBROMIDE [Suspect]
     Indication: DEPRESSION
  5. ATORVASTATIN [Suspect]
     Indication: DYSLIPIDAEMIA
  6. QUETIAPINE [Suspect]
  7. FENOFIBRATE [Suspect]
     Indication: DYSLIPIDAEMIA
  8. DICLOFENAC SODIUM [Suspect]
     Indication: PAIN IN EXTREMITY
  9. PROPRANOLOL [Suspect]

REACTIONS (21)
  - MUCOSAL HAEMORRHAGE [None]
  - PURPURA [None]
  - ARTHRALGIA [None]
  - HYPOVOLAEMIC SHOCK [None]
  - SPINAL CORD HAEMORRHAGE [None]
  - EXTRADURAL HAEMATOMA [None]
  - MELAENA [None]
  - RADICULAR PAIN [None]
  - SKIN HAEMORRHAGE [None]
  - URINARY RETENTION [None]
  - AREFLEXIA [None]
  - BACK PAIN [None]
  - DEEP VEIN THROMBOSIS [None]
  - LOSS OF BLADDER SENSATION [None]
  - DRUG INTERACTION [None]
  - ECCHYMOSIS [None]
  - SENSORY DISTURBANCE [None]
  - SNEEZING [None]
  - OEDEMA PERIPHERAL [None]
  - VESSEL PUNCTURE SITE HAEMORRHAGE [None]
  - PARAPARESIS [None]
